FAERS Safety Report 14206984 (Version 1)
Quarter: 2017Q4

REPORT INFORMATION
  Report Type: Spontaneous
  Country: US (occurrence: US)
  Receive Date: 20171121
  Receipt Date: 20171121
  Transmission Date: 20180321
  Serious: Yes (Other)
  Sender: FDA-Public Use
  Company Number: US-THE MEDICINES COMPANY-US-MDCO-17-00151

PATIENT

DRUGS (2)
  1. BIVALIRUDIN-SANDOZ [Suspect]
     Active Substance: BIVALIRUDIN
  2. BIVALIRUDIN-SANDOZ [Suspect]
     Active Substance: BIVALIRUDIN
     Indication: PRODUCT USED FOR UNKNOWN INDICATION
     Route: 040

REACTIONS (1)
  - Device related thrombosis [Unknown]

NARRATIVE: CASE EVENT DATE: 20170327
